FAERS Safety Report 6449950-5 (Version None)
Quarter: 2009Q4

REPORT INFORMATION
  Report Type: 
  Country: None (occurrence: None)
  Receive Date: 20091123
  Receipt Date: 20090927
  Transmission Date: 20100525
  Serious: Yes (Other)
  Sender: FDA-Public Use
  Company Number: FR-BAYER-200939121GPV

PATIENT
  Sex: Female
  Weight: 50 kg

DRUGS (3)
  1. BETAFERON [Suspect]
     Indication: MULTIPLE SCLEROSIS
     Route: 058
     Dates: start: 20040101
  2. NUROFEN [Concomitant]
     Dosage: 500MG - 1G
     Route: 048
     Dates: start: 20050101
  3. APIS MELLIFICA [Concomitant]
     Dosage: 7CH OR 9CH
     Route: 048
     Dates: start: 19920101

REACTIONS (4)
  - ABDOMINAL DISCOMFORT [None]
  - BURNING SENSATION [None]
  - CARDIAC DISORDER [None]
  - SELF-MEDICATION [None]
